FAERS Safety Report 12201212 (Version 1)
Quarter: 2016Q1

REPORT INFORMATION
  Report Type: Spontaneous
  Country: US (occurrence: US)
  Receive Date: 20160322
  Receipt Date: 20160322
  Transmission Date: 20160526
  Serious: No
  Sender: FDA-Public Use
  Company Number: US-SA-2015SA062721

PATIENT
  Sex: Male

DRUGS (1)
  1. NASACORT ALLERGY 24HR [Suspect]
     Active Substance: TRIAMCINOLONE ACETONIDE
     Dosage: START DATE: 3 DAYS AGO
     Route: 065

REACTIONS (2)
  - Photosensitivity reaction [Unknown]
  - Visual impairment [Unknown]

NARRATIVE: CASE EVENT DATE: 20150507
